FAERS Safety Report 16178849 (Version 1)
Quarter: 2019Q2

REPORT INFORMATION
  Report Type: Spontaneous
  Country: US (occurrence: US)
  Receive Date: 20190410
  Receipt Date: 20190410
  Transmission Date: 20190711
  Serious: No
  Sender: FDA-Public Use
  Company Number: US-ELI_LILLY_AND_COMPANY-US201904005330

PATIENT
  Sex: Female

DRUGS (1)
  1. TRULICITY [Suspect]
     Active Substance: DULAGLUTIDE
     Indication: TYPE 2 DIABETES MELLITUS
     Dosage: 0.75 MG, WEEKLY (1/W)
     Route: 058
     Dates: start: 20190321

REACTIONS (5)
  - Constipation [Unknown]
  - Nausea [Unknown]
  - Eructation [Unknown]
  - Abdominal discomfort [Unknown]
  - Gastrointestinal motility disorder [Unknown]

NARRATIVE: CASE EVENT DATE: 20190321
